FAERS Safety Report 5778948-5 (Version None)
Quarter: 2008Q2

REPORT INFORMATION
  Report Type: 
  Country: None (occurrence: None)
  Receive Date: 20080613
  Receipt Date: 20080327
  Transmission Date: 20081010
  Serious: Yes (Other)
  Sender: FDA-Public Use
  Company Number: 430022J08USA

PATIENT
  Age: 67 Year
  Sex: Male
  Weight: 72.5755 kg

DRUGS (2)
  1. NOVANTRONE [Suspect]
     Indication: MULTIPLE SCLEROSIS
     Dosage: INTRAVENOUS
     Route: 042
     Dates: start: 20071213
  2. BACLOFEN [Concomitant]

REACTIONS (5)
  - CELLULITIS [None]
  - CONDITION AGGRAVATED [None]
  - EXTRAVASATION [None]
  - INFUSION SITE DISCOLOURATION [None]
  - SWELLING [None]
